FAERS Safety Report 6347955-6 (Version None)
Quarter: 2009Q3

REPORT INFORMATION
  Report Type: 
  Country: None (occurrence: None)
  Receive Date: 20090910
  Receipt Date: 20090902
  Transmission Date: 20100115
  Serious: No
  Sender: FDA-Public Use
  Company Number: US-B.I. PHARMACEUTICALS,INC./RIDGEFIELD-2009-BP-10276BP

PATIENT
  Age: 89 Year
  Sex: Male

DRUGS (2)
  1. FLOMAX [Suspect]
     Indication: BENIGN PROSTATIC HYPERPLASIA
     Dosage: 0.8 MG
     Route: 048
     Dates: start: 20060101
  2. FLOMAX [Suspect]
     Dosage: 0.4 MG
     Route: 048
     Dates: start: 20040101, end: 20060101

REACTIONS (2)
  - URINARY INCONTINENCE [None]
  - URINE FLOW DECREASED [None]
